FAERS Safety Report 4458545-4 (Version None)
Quarter: 2004Q3

REPORT INFORMATION
  Report Type: 
  Country: None (occurrence: None)
  Receive Date: 20040917
  Receipt Date: 20040218
  Transmission Date: 20050211
  Serious: Yes (Other)
  Sender: FDA-Public Use
  Company Number: US-JNJFOC-20031103487

PATIENT
  Age: 44 Year
  Sex: Female
  Weight: 77.5651 kg

DRUGS (5)
  1. TOPAMAX [Suspect]
     Indication: MIGRAINE
     Dosage: SEE IMAGE
     Route: 048
     Dates: start: 20031010, end: 20031028
  2. TOPAMAX [Suspect]
     Indication: MIGRAINE
     Dosage: SEE IMAGE
     Route: 048
     Dates: start: 20031029, end: 20031111
  3. LEXAPRO [Concomitant]
  4. MULTIVITAMIN [Concomitant]
  5. TRAZODONE HCL [Concomitant]

REACTIONS (13)
  - DISTURBANCE IN ATTENTION [None]
  - DYSPNOEA [None]
  - FATIGUE [None]
  - GAIT DISTURBANCE [None]
  - HYPOAESTHESIA [None]
  - MEMORY IMPAIRMENT [None]
  - MENTAL STATUS CHANGES [None]
  - MOOD ALTERED [None]
  - PRURITUS [None]
  - SPEECH DISORDER [None]
  - UNEXPECTED THERAPEUTIC DRUG EFFECT [None]
  - VISION BLURRED [None]
  - WEIGHT DECREASED [None]
